FAERS Safety Report 4548876-1 (Version None)
Quarter: 2004Q4

REPORT INFORMATION
  Report Type: 
  Country: None (occurrence: None)
  Receive Date: 20041227
  Receipt Date: 20041123
  Transmission Date: 20050328
  Serious: No
  Sender: FDA-Public Use
  Company Number: 04P-163-0281359-00

PATIENT
  Age: 77 Year
  Sex: Female
  Weight: 54.4316 kg

DRUGS (5)
  1. HUMIRA [Suspect]
     Indication: RHEUMATOID ARTHRITIS
     Dosage: 40 MG, 1 IN 2 WK, SUBCUTANEOUS
     Route: 058
     Dates: start: 20030501
  2. ETODOLAC [Suspect]
     Indication: PAIN
     Dosage: 1 IN 1 D, PER ORAL
     Route: 048
     Dates: start: 20041101, end: 20041119
  3. CELECOXIB [Concomitant]
  4. ALENDRONATE SODIUM [Concomitant]
  5. AZATHIOPRINE [Concomitant]

REACTIONS (1)
  - DYSPEPSIA [None]
